FAERS Safety Report 11189694 (Version 1)
Quarter: 2015Q2

REPORT INFORMATION
  Report Type: Spontaneous
  Country: ZA (occurrence: None)
  Receive Date: 20150612
  Receipt Date: 20150612
  Transmission Date: 20150821
  Serious: Yes (Hospitalization)
  Sender: FDA-Public Use
  Company Number: None

PATIENT
  Age: 42 Year
  Sex: Female
  Weight: 72 kg

DRUGS (3)
  1. ASMAVENT [Concomitant]
     Active Substance: BUDESONIDE
  2. MIRENA [Suspect]
     Active Substance: LEVONORGESTREL
  3. VITAMIN SUPPLEMENT (VITAMIN C) [Concomitant]

REACTIONS (3)
  - Device breakage [None]
  - Menstrual disorder [None]
  - Menorrhagia [None]

NARRATIVE: CASE EVENT DATE: 20150528
